FAERS Safety Report 5518851-9 (Version None)
Quarter: 2007Q4

REPORT INFORMATION
  Report Type: 
  Country: None (occurrence: None)
  Receive Date: 20071113
  Receipt Date: 20071030
  Transmission Date: 20080405
  Serious: Yes (Hospitalization)
  Sender: FDA-Public Use
  Company Number: B0398007A

PATIENT
  Age: 66 Year
  Sex: Female

DRUGS (1)
  1. PAXIL [Suspect]
     Indication: DEPRESSION
     Dosage: PER DAY; ORAL
     Route: 048

REACTIONS (10)
  - ABNORMAL BEHAVIOUR [None]
  - ANOREXIA [None]
  - DELIRIUM [None]
  - DISORIENTATION [None]
  - DRUG INEFFECTIVE [None]
  - DRUG LEVEL INCREASED [None]
  - INSOMNIA [None]
  - MEMORY IMPAIRMENT [None]
  - NO THERAPEUTIC RESPONSE [None]
  - PORIOMANIA [None]
